FAERS Safety Report 6765826-8 (Version None)
Quarter: 2010Q2

REPORT INFORMATION
  Report Type: 
  Country: None (occurrence: None)
  Receive Date: 20100611
  Receipt Date: 20100531
  Transmission Date: 20101027
  Serious: Yes (Death)
  Sender: FDA-Public Use
  Company Number: BE-ROCHE-706745

PATIENT
  Sex: Female

DRUGS (5)
  1. AVASTIN [Suspect]
     Route: 065
  2. FLUOROURACIL [Concomitant]
  3. FOLINIC ACID [Concomitant]
  4. OXALIPLATIN [Concomitant]
  5. IRINOTECAN [Concomitant]

REACTIONS (1)
  - DEATH [None]
